FAERS Safety Report 24119654 (Version 2)
Quarter: 2024Q3

REPORT INFORMATION
  Report Type: Spontaneous
  Country: US (occurrence: US)
  Receive Date: 20240722
  Receipt Date: 20240731
  Transmission Date: 20241017
  Serious: Yes (Other)
  Sender: CIPLA
  Company Number: US-MLMSERVICE-20240703-PI117503-00120-1

PATIENT

DRUGS (7)
  1. DICLOFENAC [Suspect]
     Active Substance: DICLOFENAC
     Indication: Chest pain
     Dosage: UNK
     Route: 061
  2. DICLOFENAC [Suspect]
     Active Substance: DICLOFENAC
     Indication: Pain
  3. CELECOXIB [Suspect]
     Active Substance: CELECOXIB
     Indication: Chest pain
     Dosage: UNK
     Route: 065
  4. CELECOXIB [Suspect]
     Active Substance: CELECOXIB
     Indication: Pain
  5. AZATHIOPRINE [Concomitant]
     Active Substance: AZATHIOPRINE
     Indication: Colitis ulcerative
     Dosage: 75 MILLIGRAM, QD
     Route: 065
  6. BALSALAZIDE [Concomitant]
     Active Substance: BALSALAZIDE
     Indication: Colitis ulcerative
     Dosage: 6000 MILLIGRAM, QD
     Route: 065
  7. INFLIXIMAB [Concomitant]
     Active Substance: INFLIXIMAB
     Indication: Colitis ulcerative
     Dosage: 10 MILLIGRAM/KILOGRAM, EVERY 8 WEEKS
     Route: 065

REACTIONS (1)
  - Colitis ulcerative [Recovered/Resolved]
